FAERS Safety Report 9920091 (Version 1)
Quarter: 2014Q1

REPORT INFORMATION
  Report Type: Spontaneous
  Country: JP (occurrence: JP)
  Receive Date: 20140224
  Receipt Date: 20140224
  Transmission Date: 20141002
  Serious: Yes (Other)
  Sender: FDA-Public Use
  Company Number: JP-WATSON-2014-02800

PATIENT
  Age: 23 Year
  Sex: Female

DRUGS (3)
  1. CISPLATIN (UNKNOWN) [Suspect]
     Indication: OVARIAN GERM CELL ENDODERMAL SINUS TUMOUR STAGE III
     Dosage: 20 MG/M2, DAYS 1-5, 4CYCLES
     Route: 065
  2. ETOPOSIDE (UNKNOWN) [Suspect]
     Indication: OVARIAN GERM CELL ENDODERMAL SINUS TUMOUR STAGE III
     Dosage: 100 MG/M2, DAYS 1-5, 4 CYCLES
     Route: 065
  3. BLEOMYCIN [Interacting]
     Indication: OVARIAN GERM CELL ENDODERMAL SINUS TUMOUR STAGE III
     Dosage: 30 MG, DAYS 3,9,16, 3 CYCLES
     Route: 065

REACTIONS (6)
  - Cardiac failure congestive [Unknown]
  - Pulmonary fibrosis [Not Recovered/Not Resolved]
  - Acute interstitial pneumonitis [Recovered/Resolved with Sequelae]
  - Tumour lysis syndrome [Recovered/Resolved]
  - Febrile neutropenia [Unknown]
  - Drug interaction [Unknown]
